FAERS Safety Report 16781298 (Version 2)
Quarter: 2019Q4

REPORT INFORMATION
  Report Type: Spontaneous
  Country: US (occurrence: US)
  Receive Date: 20190906
  Receipt Date: 20191101
  Transmission Date: 20200122
  Serious: Yes (Other)
  Sender: FDA-Public Use
  Company Number: US-SA-2019SA243562

PATIENT
  Sex: Male

DRUGS (1)
  1. TOUJEO [Suspect]
     Active Substance: INSULIN GLARGINE
     Dosage: 56 U, BID
     Route: 065

REACTIONS (3)
  - Device leakage [Recovering/Resolving]
  - Diabetes mellitus inadequate control [Recovering/Resolving]
  - Inappropriate schedule of product administration [Unknown]
